FAERS Safety Report 12530467 (Version 1)
Quarter: 2016Q3

REPORT INFORMATION
  Report Type: Spontaneous
  Country: GB (occurrence: GB)
  Receive Date: 20160706
  Receipt Date: 20160706
  Transmission Date: 20161109
  Serious: Yes (Other)
  Sender: FDA-Public Use
  Company Number: GB-ROCHE-1737984

PATIENT
  Sex: Female

DRUGS (3)
  1. HERCEPTIN [Suspect]
     Active Substance: TRASTUZUMAB
     Indication: PRODUCT USED FOR UNKNOWN INDICATION
     Route: 058
  2. LETROZOLE. [Concomitant]
     Active Substance: LETROZOLE
  3. EXEMESTANE. [Concomitant]
     Active Substance: EXEMESTANE

REACTIONS (4)
  - Arthralgia [Unknown]
  - Finger deformity [Unknown]
  - Malignant melanoma [Unknown]
  - Joint swelling [Unknown]
